FAERS Safety Report 14674298 (Version 1)
Quarter: 2018Q1

REPORT INFORMATION
  Report Type: Spontaneous
  Country: US (occurrence: US)
  Receive Date: 20180323
  Receipt Date: 20180323
  Transmission Date: 20180509
  Serious: Yes (Other)
  Sender: FDA-Public Use
  Company Number: US-BAYER-2018-052357

PATIENT
  Sex: Female
  Weight: 118 kg

DRUGS (3)
  1. BAYER ASPIRIN [Suspect]
     Active Substance: ASPIRIN
     Dosage: UNK
     Route: 065
  2. METFORMIN [Concomitant]
     Active Substance: METFORMIN HYDROCHLORIDE
     Dosage: UNK
  3. DAPAGLIFLOZIN. [Concomitant]
     Active Substance: DAPAGLIFLOZIN
     Dosage: UNK

REACTIONS (6)
  - Malaise [Recovered/Resolved]
  - Drug intolerance [Unknown]
  - Ill-defined disorder [Unknown]
  - Ulcer [Recovered/Resolved with Sequelae]
  - Drug hypersensitivity [Unknown]
  - Drug administered to patient of inappropriate age [Unknown]
